FAERS Safety Report 21014742 (Version 2)
Quarter: 2022Q4

REPORT INFORMATION
  Report Type: Report from Study
  Country: US (occurrence: US)
  Receive Date: 20220628
  Receipt Date: 20221027
  Transmission Date: 20230112
  Serious: Yes (Other)
  Sender: FDA-Public Use
  Company Number: US-ABBVIE-22K-163-4445226-00

PATIENT
  Sex: Female

DRUGS (2)
  1. RINVOQ [Suspect]
     Active Substance: UPADACITINIB
     Indication: Rheumatoid arthritis
     Dosage: STRENGTH:15MG?FREQUENCY TEXT: DAILY?DRUG START DATE 28 AUG 2021
     Route: 048
     Dates: end: 202209
  2. RINVOQ [Suspect]
     Active Substance: UPADACITINIB
     Indication: Rheumatoid arthritis
     Dosage: DRUG START DATE :2022?FREQUENCY TEXT: DAILY
     Route: 048

REACTIONS (8)
  - Choking [Recovering/Resolving]
  - Tremor [Unknown]
  - Thyroid operation [Unknown]
  - Hypoacusis [Unknown]
  - Arthralgia [Unknown]
  - COVID-19 [Unknown]
  - Back pain [Unknown]
  - Pain [Unknown]

NARRATIVE: CASE EVENT DATE: 20210101
